FAERS Safety Report 9979523 (Version 2)
Quarter: 2014Q1

REPORT INFORMATION
  Report Type: Report from Study
  Country: US (occurrence: US)
  Receive Date: 20140306
  Receipt Date: 20140306
  Transmission Date: 20141002
  Serious: Yes (Other)
  Sender: FDA-Public Use
  Company Number: US-ABBVIE-13P-163-1148453-00

PATIENT
  Age: 36 Year
  Sex: Female
  Weight: 91.71 kg

DRUGS (17)
  1. HUMIRA [Suspect]
     Indication: CROHN^S DISEASE
     Dates: start: 201304, end: 201309
  2. HUMIRA [Suspect]
     Dates: start: 20130917
  3. HUMIRA [Suspect]
  4. BUSPAR [Concomitant]
     Indication: ANXIETY
  5. LIBRAX [Concomitant]
     Indication: IRRITABLE BOWEL SYNDROME
     Dosage: 5/2.5 MG THREE TIMES DAILY
  6. PHENERGAN [Concomitant]
     Indication: VOMITING
     Dosage: AS NEEDED
  7. KLONOPIN [Concomitant]
     Indication: NERVOUSNESS
  8. PREVACID [Concomitant]
     Indication: GASTROOESOPHAGEAL REFLUX DISEASE
  9. RANITIDINE [Concomitant]
     Indication: GASTROOESOPHAGEAL REFLUX DISEASE
  10. NASONEX [Concomitant]
     Indication: RHINITIS
     Dosage: 2 PUFFS AT BEDTIME
  11. ASTEPRO [Concomitant]
     Indication: RHINITIS
     Dosage: 2 PUFFS AT BEDTIME
  12. ASMANEX [Concomitant]
     Indication: ASTHMA
  13. VENTOLIN [Concomitant]
     Indication: ASTHMA
  14. VITAMIN D [Concomitant]
     Indication: VITAMIN D DEFICIENCY
  15. KENALOG [Concomitant]
     Indication: MOUTH ULCERATION
  16. LORTAB [Concomitant]
     Indication: PAIN
     Dosage: 5/500MG TWICE DAILY AS NEEDED
  17. LYRICA [Concomitant]
     Indication: NEURALGIA

REACTIONS (14)
  - Herpes zoster oticus [Not Recovered/Not Resolved]
  - Herpes zoster [Recovering/Resolving]
  - Fall [Recovered/Resolved]
  - Radius fracture [Recovering/Resolving]
  - Vertigo [Recovering/Resolving]
  - Herpes zoster [Recovering/Resolving]
  - Herpes simplex [Recovering/Resolving]
  - Drug effect decreased [Unknown]
  - Injection site pain [Unknown]
  - Injection site bruising [Unknown]
  - Injection site erythema [Unknown]
  - Nausea [Unknown]
  - Ear pain [Unknown]
  - Eye pain [Unknown]
